FAERS Safety Report 19760184 (Version 2)
Quarter: 2021Q3

REPORT INFORMATION
  Report Type: Spontaneous
  Country: TH (occurrence: TH)
  Receive Date: 20210830
  Receipt Date: 20210907
  Transmission Date: 20211014
  Serious: Yes (Other)
  Sender: FDA-Public Use
  Company Number: NVSC2021TH186537

PATIENT
  Age: 51 Year
  Sex: Male

DRUGS (139)
  1. SECUKINUMAB. [Suspect]
     Active Substance: SECUKINUMAB
     Dosage: 300 MG, Q4W
     Route: 065
     Dates: start: 202105
  2. SECUKINUMAB. [Suspect]
     Active Substance: SECUKINUMAB
     Dosage: UNK
     Route: 065
  3. METHOTREXATE. [Concomitant]
     Active Substance: METHOTREXATE
     Dosage: 10 MG, QW
     Route: 058
     Dates: start: 201911
  4. METHOTREXATE. [Concomitant]
     Active Substance: METHOTREXATE
     Dosage: 10 MG, QW
     Route: 058
     Dates: start: 201911
  5. METHOTREXATE. [Concomitant]
     Active Substance: METHOTREXATE
     Dosage: 10 MG, QW
     Route: 058
     Dates: end: 202003
  6. CYCLOSPORINE. [Concomitant]
     Active Substance: CYCLOSPORINE
     Dosage: 200 MG, QD
     Route: 065
     Dates: start: 201809
  7. CYCLOSPORINE. [Concomitant]
     Active Substance: CYCLOSPORINE
     Dosage: 200 MG, QD
     Route: 065
     Dates: start: 202008
  8. CYCLOSPORINE. [Concomitant]
     Active Substance: CYCLOSPORINE
     Dosage: 100 MG, QD
     Route: 065
     Dates: start: 202106
  9. ETANERCEPT [Concomitant]
     Active Substance: ETANERCEPT
     Indication: PRODUCT USED FOR UNKNOWN INDICATION
     Dosage: 50 MG, Q4W
     Route: 065
     Dates: start: 201805
  10. ETANERCEPT [Concomitant]
     Active Substance: ETANERCEPT
     Dosage: 50 MG, Q4W
     Route: 065
     Dates: start: 20190701
  11. ETANERCEPT [Concomitant]
     Active Substance: ETANERCEPT
     Dosage: 50 MG Q5D
     Route: 065
     Dates: start: 202101, end: 202103
  12. LEFLUNOMID [Concomitant]
     Active Substance: LEFLUNOMIDE
     Indication: PRODUCT USED FOR UNKNOWN INDICATION
     Dosage: 20 MG, QD
     Route: 065
     Dates: start: 201808
  13. LEFLUNOMID [Concomitant]
     Active Substance: LEFLUNOMIDE
     Dosage: 20 MG, QD
     Route: 065
     Dates: start: 201901
  14. LEFLUNOMID [Concomitant]
     Active Substance: LEFLUNOMIDE
     Dosage: 20 MG, QD
     Route: 065
     Dates: start: 201905
  15. LEFLUNOMID [Concomitant]
     Active Substance: LEFLUNOMIDE
     Dosage: 20 MG, QD
     Route: 065
     Dates: start: 202001
  16. LEFLUNOMID [Concomitant]
     Active Substance: LEFLUNOMIDE
     Dosage: 20 MG, QD
     Route: 065
     Dates: start: 202106
  17. HYDROXYCHLOROQUINE [Concomitant]
     Active Substance: HYDROXYCHLOROQUINE
     Dosage: 200 MG, QD
     Route: 065
     Dates: start: 201810
  18. HYDROXYCHLOROQUINE [Concomitant]
     Active Substance: HYDROXYCHLOROQUINE
     Dosage: 200 MG, QD
     Route: 065
     Dates: start: 201903
  19. ACITRETIN. [Concomitant]
     Active Substance: ACITRETIN
     Dosage: 25 MG, QD
     Route: 065
     Dates: start: 201903
  20. SECUKINUMAB. [Suspect]
     Active Substance: SECUKINUMAB
     Dosage: 300 MG, Q4W
     Route: 065
     Dates: start: 202104
  21. SECUKINUMAB. [Suspect]
     Active Substance: SECUKINUMAB
     Dosage: UNK
     Route: 065
  22. METHOTREXATE. [Concomitant]
     Active Substance: METHOTREXATE
     Dosage: 12.5 MG, QW
     Route: 058
     Dates: start: 201808
  23. METHOTREXATE. [Concomitant]
     Active Substance: METHOTREXATE
     Dosage: 12.5 MG, QW
     Route: 058
     Dates: start: 201809
  24. METHOTREXATE. [Concomitant]
     Active Substance: METHOTREXATE
     Dosage: 12.5 MG, QW
     Route: 058
     Dates: start: 201901
  25. METHOTREXATE. [Concomitant]
     Active Substance: METHOTREXATE
     Dosage: 10 MG, QW
     Route: 058
     Dates: start: 202001
  26. CYCLOSPORINE. [Concomitant]
     Active Substance: CYCLOSPORINE
     Dosage: 200 MG, QD
     Route: 065
     Dates: start: 201801
  27. CYCLOSPORINE. [Concomitant]
     Active Substance: CYCLOSPORINE
     Dosage: UNK
     Route: 065
     Dates: start: 20190701
  28. ISONIAZIDE [Concomitant]
     Active Substance: ISONIAZID
     Indication: PRODUCT USED FOR UNKNOWN INDICATION
     Dosage: 300 MG, QD(FOR 9 MONTHS)
     Route: 065
  29. ETANERCEPT [Concomitant]
     Active Substance: ETANERCEPT
     Dosage: 50 MG, Q4W
     Route: 065
     Dates: start: 201809
  30. ETANERCEPT [Concomitant]
     Active Substance: ETANERCEPT
     Dosage: 50 MG, Q4W
     Route: 065
     Dates: start: 201905
  31. ETANERCEPT [Concomitant]
     Active Substance: ETANERCEPT
     Dosage: 50 MG Q5D
     Route: 065
     Dates: start: 202012
  32. LEFLUNOMID [Concomitant]
     Active Substance: LEFLUNOMIDE
     Dosage: 20 MG, QD
     Route: 065
     Dates: start: 201903
  33. ACITRETIN. [Concomitant]
     Active Substance: ACITRETIN
     Dosage: 25 MG, QD
     Route: 065
     Dates: end: 20190726
  34. ACITRETIN. [Concomitant]
     Active Substance: ACITRETIN
     Dosage: 25 MG, QD
     Route: 065
     Dates: start: 202001
  35. ACITRETIN. [Concomitant]
     Active Substance: ACITRETIN
     Dosage: 25/50 MG, AD
     Route: 065
     Dates: start: 202005
  36. ACITRETIN. [Concomitant]
     Active Substance: ACITRETIN
     Dosage: 25/50 MG, AD
     Route: 065
     Dates: start: 202008
  37. ASPIRIN. [Concomitant]
     Active Substance: ASPIRIN
     Indication: PRODUCT USED FOR UNKNOWN INDICATION
     Dosage: 81(1X1)
     Route: 065
  38. SECUKINUMAB. [Suspect]
     Active Substance: SECUKINUMAB
     Indication: PRODUCT USED FOR UNKNOWN INDICATION
     Dosage: UNK MG
     Route: 065
     Dates: start: 202101
  39. METHOTREXATE. [Concomitant]
     Active Substance: METHOTREXATE
     Dosage: 10 MG, QW
     Route: 065
     Dates: start: 201801
  40. METHOTREXATE. [Concomitant]
     Active Substance: METHOTREXATE
     Dosage: 15 MG, QW
     Route: 065
     Dates: start: 201805
  41. METHOTREXATE. [Concomitant]
     Active Substance: METHOTREXATE
     Dosage: 12.5 MG, QW
     Route: 058
     Dates: start: 201903
  42. METHOTREXATE. [Concomitant]
     Active Substance: METHOTREXATE
     Dosage: 12.5 MG, QW
     Route: 058
     Dates: end: 20190701
  43. CYCLOSPORINE. [Concomitant]
     Active Substance: CYCLOSPORINE
     Dosage: 200 MG, QD
     Route: 065
     Dates: start: 201804
  44. CYCLOSPORINE. [Concomitant]
     Active Substance: CYCLOSPORINE
     Dosage: 200 MG, QD
     Route: 065
     Dates: start: 20190726
  45. CYCLOSPORINE. [Concomitant]
     Active Substance: CYCLOSPORINE
     Dosage: 100 MG, QD
     Route: 065
     Dates: start: 202012, end: 202101
  46. ETANERCEPT [Concomitant]
     Active Substance: ETANERCEPT
     Dosage: 50 MG, Q4W
     Route: 065
     Dates: start: 201808
  47. ETANERCEPT [Concomitant]
     Active Substance: ETANERCEPT
     Dosage: 50 MG, Q4W
     Route: 065
     Dates: start: 201901
  48. ETANERCEPT [Concomitant]
     Active Substance: ETANERCEPT
     Dosage: 50 MG Q5D
     Route: 065
     Dates: start: 202003
  49. HYDROXYCHLOROQUINE [Concomitant]
     Active Substance: HYDROXYCHLOROQUINE
     Indication: PRODUCT USED FOR UNKNOWN INDICATION
     Dosage: 200 MG, QD
     Route: 065
     Dates: start: 201809
  50. ACITRETIN. [Concomitant]
     Active Substance: ACITRETIN
     Dosage: 25 MG, QD
     Route: 065
     Dates: start: 202101, end: 202103
  51. SULFASALAZINE. [Concomitant]
     Active Substance: SULFASALAZINE
     Dosage: 2000 MG, QD
     Route: 065
     Dates: start: 202101
  52. METFORMIN [Concomitant]
     Active Substance: METFORMIN HYDROCHLORIDE
     Dosage: 1000 MG, QD
     Route: 065
     Dates: start: 202008
  53. METFORMIN [Concomitant]
     Active Substance: METFORMIN HYDROCHLORIDE
     Dosage: 1700 MG, QD
     Route: 065
     Dates: start: 202108
  54. ATORVASTATIN [Concomitant]
     Active Substance: ATORVASTATIN
     Indication: PRODUCT USED FOR UNKNOWN INDICATION
     Dosage: 40 2XHS
     Route: 065
  55. CAPTOPRIL. [Concomitant]
     Active Substance: CAPTOPRIL
     Indication: PRODUCT USED FOR UNKNOWN INDICATION
     Dosage: (25) 0.5X2
     Route: 065
  56. AZILSARTAN;CHLORTALIDONE [Concomitant]
     Indication: PRODUCT USED FOR UNKNOWN INDICATION
     Dosage: (40/12.5) 1X1
     Route: 065
  57. METHOTREXATE. [Concomitant]
     Active Substance: METHOTREXATE
     Dosage: 10 MG, QW
     Route: 065
     Dates: start: 201712
  58. METHOTREXATE. [Concomitant]
     Active Substance: METHOTREXATE
     Dosage: 15 MG, QW
     Route: 065
     Dates: start: 201802
  59. CYCLOSPORINE. [Concomitant]
     Active Substance: CYCLOSPORINE
     Indication: PRODUCT USED FOR UNKNOWN INDICATION
     Dosage: 100 MG, QD
     Route: 065
     Dates: start: 201712
  60. CYCLOSPORINE. [Concomitant]
     Active Substance: CYCLOSPORINE
     Dosage: 200 MG, QD
     Route: 065
     Dates: start: 201903
  61. CYCLOSPORINE. [Concomitant]
     Active Substance: CYCLOSPORINE
     Dosage: 100 MG, QD
     Route: 065
     Dates: start: 202105
  62. LEFLUNOMID [Concomitant]
     Active Substance: LEFLUNOMIDE
     Dosage: 20 MG, QD
     Route: 065
     Dates: start: 202012
  63. LEFLUNOMID [Concomitant]
     Active Substance: LEFLUNOMIDE
     Dosage: 20 MG, QD
     Route: 065
     Dates: start: 202104
  64. HYDROXYCHLOROQUINE [Concomitant]
     Active Substance: HYDROXYCHLOROQUINE
     Dosage: 200 MG, QD
     Route: 065
     Dates: start: 20190701
  65. ACITRETIN. [Concomitant]
     Active Substance: ACITRETIN
     Dosage: 25 MG, QD
     Route: 065
     Dates: start: 20190701
  66. SULFASALAZINE. [Concomitant]
     Active Substance: SULFASALAZINE
     Dosage: 2500 MG, QD
     Route: 065
     Dates: start: 202105
  67. SULFASALAZINE. [Concomitant]
     Active Substance: SULFASALAZINE
     Dosage: 2500 MG, QD
     Route: 065
     Dates: start: 202106
  68. METFORMIN [Concomitant]
     Active Substance: METFORMIN HYDROCHLORIDE
     Dosage: 1000 MG, QD
     Route: 065
     Dates: start: 202012
  69. METFORMIN [Concomitant]
     Active Substance: METFORMIN HYDROCHLORIDE
     Dosage: 1700 MG, QD
     Route: 065
     Dates: start: 202103
  70. SECUKINUMAB. [Suspect]
     Active Substance: SECUKINUMAB
     Dosage: 300 MG, Q4W
     Route: 065
     Dates: start: 202106
  71. SECUKINUMAB. [Suspect]
     Active Substance: SECUKINUMAB
     Dosage: 300 MG, Q4W
     Route: 065
     Dates: start: 202108
  72. SECUKINUMAB. [Suspect]
     Active Substance: SECUKINUMAB
     Dosage: UNK
     Route: 065
  73. METHOTREXATE. [Concomitant]
     Active Substance: METHOTREXATE
     Dosage: 15 MG, QW
     Route: 065
     Dates: start: 201804
  74. CYCLOSPORINE. [Concomitant]
     Active Substance: CYCLOSPORINE
     Dosage: 200 MG, QD
     Route: 065
     Dates: start: 201808
  75. CYCLOSPORINE. [Concomitant]
     Active Substance: CYCLOSPORINE
     Dosage: 200 MG, QD
     Route: 065
     Dates: start: 201911
  76. CYCLOSPORINE. [Concomitant]
     Active Substance: CYCLOSPORINE
     Dosage: 100 MG, QD
     Route: 065
     Dates: start: 202108
  77. ETANERCEPT [Concomitant]
     Active Substance: ETANERCEPT
     Dosage: 50 MG, Q4W
     Route: 065
     Dates: start: 201903
  78. ETANERCEPT [Concomitant]
     Active Substance: ETANERCEPT
     Dosage: 50 MG Q5D
     Route: 065
     Dates: start: 202005
  79. LEFLUNOMID [Concomitant]
     Active Substance: LEFLUNOMIDE
     Dosage: 20 MG, QD
     Route: 065
     Dates: start: 20190701
  80. LEFLUNOMID [Concomitant]
     Active Substance: LEFLUNOMIDE
     Dosage: 20 MG, QD
     Route: 065
     Dates: start: 202003
  81. LEFLUNOMID [Concomitant]
     Active Substance: LEFLUNOMIDE
     Dosage: 20 MG, QD
     Route: 065
     Dates: start: 202008
  82. LEFLUNOMID [Concomitant]
     Active Substance: LEFLUNOMIDE
     Dosage: 20 MG, QD
     Route: 065
     Dates: start: 202103
  83. LEFLUNOMID [Concomitant]
     Active Substance: LEFLUNOMIDE
     Dosage: 20 MG, QD
     Route: 065
     Dates: start: 202108
  84. HYDROXYCHLOROQUINE [Concomitant]
     Active Substance: HYDROXYCHLOROQUINE
     Dosage: 200 MG, QD
     Route: 065
     Dates: start: 201905
  85. HYDROXYCHLOROQUINE [Concomitant]
     Active Substance: HYDROXYCHLOROQUINE
     Dosage: 200 MG, QD
     Route: 065
     Dates: end: 20190726
  86. ACITRETIN. [Concomitant]
     Active Substance: ACITRETIN
     Indication: PRODUCT USED FOR UNKNOWN INDICATION
     Dosage: 25 MG, QW3
     Route: 065
     Dates: start: 201901
  87. ACITRETIN. [Concomitant]
     Active Substance: ACITRETIN
     Dosage: 25/50 MG, AD
     Route: 065
     Dates: start: 202012
  88. METFORMIN [Concomitant]
     Active Substance: METFORMIN HYDROCHLORIDE
     Dosage: 1700 MG, QD
     Route: 065
     Dates: start: 202104
  89. METFORMIN [Concomitant]
     Active Substance: METFORMIN HYDROCHLORIDE
     Dosage: 1700 MG, QD
     Route: 065
     Dates: start: 202105
  90. CLOPIDOGREL [Concomitant]
     Active Substance: CLOPIDOGREL BISULFATE
     Indication: PRODUCT USED FOR UNKNOWN INDICATION
     Dosage: (75) 1X1
     Route: 065
  91. OMEPRAZOLE. [Concomitant]
     Active Substance: OMEPRAZOLE
     Indication: PRODUCT USED FOR UNKNOWN INDICATION
     Dosage: (20) 1X1
     Route: 065
  92. METHOTREXATE. [Concomitant]
     Active Substance: METHOTREXATE
     Indication: PRODUCT USED FOR UNKNOWN INDICATION
     Dosage: 10 MG, QW
     Route: 065
     Dates: start: 201711
  93. CYCLOSPORINE. [Concomitant]
     Active Substance: CYCLOSPORINE
     Dosage: 200 MG, QD
     Route: 065
     Dates: start: 201802
  94. CYCLOSPORINE. [Concomitant]
     Active Substance: CYCLOSPORINE
     Dosage: 200 MG, QD
     Route: 065
     Dates: start: 201810
  95. CYCLOSPORINE. [Concomitant]
     Active Substance: CYCLOSPORINE
     Dosage: 200 MG, QD
     Route: 065
     Dates: start: 202001
  96. ETANERCEPT [Concomitant]
     Active Substance: ETANERCEPT
     Dosage: 50 MG Q5D
     Route: 065
     Dates: start: 201911
  97. ETANERCEPT [Concomitant]
     Active Substance: ETANERCEPT
     Dosage: 50 MG Q5D
     Route: 065
     Dates: start: 202001
  98. ETANERCEPT [Concomitant]
     Active Substance: ETANERCEPT
     Dosage: 50 MG Q5D
     Route: 065
     Dates: start: 202008
  99. LEFLUNOMID [Concomitant]
     Active Substance: LEFLUNOMIDE
     Dosage: 20 MG, QD
     Route: 065
     Dates: start: 201809
  100. LEFLUNOMID [Concomitant]
     Active Substance: LEFLUNOMIDE
     Dosage: 20 MG, QD
     Route: 065
     Dates: start: 201810
  101. LEFLUNOMID [Concomitant]
     Active Substance: LEFLUNOMIDE
     Dosage: 20 MG, QD
     Route: 065
     Dates: start: 201911
  102. LEFLUNOMID [Concomitant]
     Active Substance: LEFLUNOMIDE
     Dosage: 20 MG, QD
     Route: 065
     Dates: start: 202105
  103. HYDROXYCHLOROQUINE [Concomitant]
     Active Substance: HYDROXYCHLOROQUINE
     Dosage: 200 MG, QD
     Route: 065
     Dates: start: 201901
  104. SULFASALAZINE. [Concomitant]
     Active Substance: SULFASALAZINE
     Dosage: 2000 MG, QD
     Route: 065
     Dates: start: 202104
  105. SULFASALAZINE. [Concomitant]
     Active Substance: SULFASALAZINE
     Dosage: 2500 MG, QD
     Route: 065
     Dates: start: 202108
  106. METFORMIN [Concomitant]
     Active Substance: METFORMIN HYDROCHLORIDE
     Indication: PRODUCT USED FOR UNKNOWN INDICATION
     Dosage: 500 MG, QD
     Route: 065
     Dates: start: 202005
  107. METFORMIN [Concomitant]
     Active Substance: METFORMIN HYDROCHLORIDE
     Dosage: 1700 MG, QD
     Route: 065
     Dates: start: 202106
  108. MANIDIPINE [Concomitant]
     Active Substance: MANIDIPINE
     Indication: PRODUCT USED FOR UNKNOWN INDICATION
     Dosage: (20) 1X1
     Route: 065
  109. CILOSTAZOL. [Concomitant]
     Active Substance: CILOSTAZOL
     Indication: PRODUCT USED FOR UNKNOWN INDICATION
     Dosage: (100) 2X1
     Route: 065
  110. FOLIC ACID. [Concomitant]
     Active Substance: FOLIC ACID
     Indication: PRODUCT USED FOR UNKNOWN INDICATION
     Dosage: (5) 1X1
     Route: 065
  111. VITAMIN D 2000 [Concomitant]
     Active Substance: VITAMIN D NOS
     Indication: PRODUCT USED FOR UNKNOWN INDICATION
     Dosage: UNK, QW
     Route: 065
  112. SECUKINUMAB. [Suspect]
     Active Substance: SECUKINUMAB
     Dosage: 300 MG, Q5W
     Route: 065
     Dates: start: 202103
  113. METHOTREXATE. [Concomitant]
     Active Substance: METHOTREXATE
     Dosage: 12.5 MG, QW
     Route: 058
     Dates: start: 201810
  114. CYCLOSPORINE. [Concomitant]
     Active Substance: CYCLOSPORINE
     Dosage: 200 MG, QD
     Route: 065
     Dates: start: 201901
  115. CYCLOSPORINE. [Concomitant]
     Active Substance: CYCLOSPORINE
     Dosage: 300 MG, QD
     Route: 065
     Dates: start: 201905
  116. CYCLOSPORINE. [Concomitant]
     Active Substance: CYCLOSPORINE
     Dosage: 200 MG, QD
     Route: 065
     Dates: start: 202003
  117. CYCLOSPORINE. [Concomitant]
     Active Substance: CYCLOSPORINE
     Dosage: 100 MG, QD
     Route: 065
     Dates: start: 202104
  118. NAPROXEN. [Concomitant]
     Active Substance: NAPROXEN
     Indication: PRODUCT USED FOR UNKNOWN INDICATION
     Dosage: 250 BID
     Route: 065
     Dates: start: 201802
  119. NAPROXEN. [Concomitant]
     Active Substance: NAPROXEN
     Dosage: 250 BID
     Route: 065
     Dates: start: 201804
  120. ETANERCEPT [Concomitant]
     Active Substance: ETANERCEPT
     Dosage: 50 MG, Q4W
     Route: 065
     Dates: start: 201810
  121. LEFLUNOMID [Concomitant]
     Active Substance: LEFLUNOMIDE
     Dosage: 20 MG, QD
     Route: 065
     Dates: start: 20190726
  122. LEFLUNOMID [Concomitant]
     Active Substance: LEFLUNOMIDE
     Dosage: 20 MG, QD
     Route: 065
     Dates: start: 202005
  123. LEFLUNOMID [Concomitant]
     Active Substance: LEFLUNOMIDE
     Dosage: 20 MG, QD
     Route: 065
     Dates: start: 202101
  124. ACITRETIN. [Concomitant]
     Active Substance: ACITRETIN
     Dosage: 25 MG, QD
     Route: 065
     Dates: start: 201911
  125. ACITRETIN. [Concomitant]
     Active Substance: ACITRETIN
     Dosage: 25 MG, QD
     Route: 065
     Dates: start: 202003
  126. SULFASALAZINE. [Concomitant]
     Active Substance: SULFASALAZINE
     Dosage: 2000 MG, QD
     Route: 065
     Dates: start: 202012
  127. SECUKINUMAB. [Suspect]
     Active Substance: SECUKINUMAB
     Dosage: UNK
     Route: 065
  128. METHOTREXATE. [Concomitant]
     Active Substance: METHOTREXATE
     Dosage: 12.5 MG, QW
     Route: 058
     Dates: start: 201905
  129. CYCLOSPORINE. [Concomitant]
     Active Substance: CYCLOSPORINE
     Dosage: 200 MG, QD
     Route: 065
     Dates: start: 201805
  130. CYCLOSPORINE. [Concomitant]
     Active Substance: CYCLOSPORINE
     Dosage: 200 MG, QD
     Route: 065
     Dates: start: 202005
  131. NAPROXEN. [Concomitant]
     Active Substance: NAPROXEN
     Dosage: 250 UNK, BID
     Route: 065
     Dates: start: 201805
  132. ETANERCEPT [Concomitant]
     Active Substance: ETANERCEPT
     Dosage: 50 MG, Q4W
     Route: 065
     Dates: start: 20190726
  133. LEFLUNOMID [Concomitant]
     Active Substance: LEFLUNOMIDE
     Dosage: 20 MG, QD
     Route: 065
     Dates: start: 201808
  134. ACITRETIN. [Concomitant]
     Active Substance: ACITRETIN
     Dosage: 25 MG, QD
     Route: 065
     Dates: start: 201905
  135. SULFASALAZINE. [Concomitant]
     Active Substance: SULFASALAZINE
     Indication: PRODUCT USED FOR UNKNOWN INDICATION
     Dosage: 1500 MG, QD
     Route: 065
     Dates: start: 202003
  136. SULFASALAZINE. [Concomitant]
     Active Substance: SULFASALAZINE
     Dosage: 1500 MG, QD
     Route: 065
     Dates: start: 202005
  137. SULFASALAZINE. [Concomitant]
     Active Substance: SULFASALAZINE
     Dosage: 2000 MG, QD
     Route: 065
     Dates: start: 202103
  138. METFORMIN [Concomitant]
     Active Substance: METFORMIN HYDROCHLORIDE
     Dosage: 1700 MG, QD
     Route: 065
     Dates: start: 202101
  139. CALCIUM CARBONATE. [Concomitant]
     Active Substance: CALCIUM CARBONATE
     Indication: PRODUCT USED FOR UNKNOWN INDICATION
     Dosage: (600) 1X2
     Route: 065

REACTIONS (7)
  - Rash erythematous [Unknown]
  - Latent tuberculosis [Unknown]
  - Hepatitis C [Unknown]
  - Arthralgia [Unknown]
  - Dermatitis exfoliative generalised [Unknown]
  - Glucose tolerance impaired [Unknown]
  - Psoriatic arthropathy [Recovered/Resolved]
